FAERS Safety Report 7299575-7 (Version None)
Quarter: 2011Q1

REPORT INFORMATION
  Report Type: 
  Country: None (occurrence: None)
  Receive Date: 20110208
  Receipt Date: 20110124
  Transmission Date: 20110831
  Serious: Yes (Life-Threatening, Other)
  Sender: FDA-Public Use
  Company Number: 2011P1004094

PATIENT
  Age: 71 Year
  Sex: Male

DRUGS (2)
  1. TACROLIMUS [Suspect]
     Indication: IMMUNOSUPPRESSION
     Dosage: PO
     Route: 048
  2. AMIODARONE HCL [Suspect]
     Indication: ATRIAL FIBRILLATION
     Dosage: 150 MG;BOLUS;IV; 1 MG/MIN;FOR 6 HOURS;IV; 0.5 MG/MIN;FOR 18 HOURS;IV; 200 MG;Q12H;PO
     Route: 042

REACTIONS (4)
  - VENTRICULAR FIBRILLATION [None]
  - DRUG INTERACTION [None]
  - BLOOD MAGNESIUM DECREASED [None]
  - TORSADE DE POINTES [None]
